FAERS Safety Report 21857344 (Version 9)
Quarter: 2024Q2

REPORT INFORMATION
  Report Type: Spontaneous
  Country: US (occurrence: US)
  Receive Date: 20230113
  Receipt Date: 20240517
  Transmission Date: 20240716
  Serious: Yes (Death, Hospitalization, Other)
  Sender: FDA-Public Use
  Company Number: US-009507513-2301USA002083

PATIENT
  Sex: Male
  Weight: 96.145 kg

DRUGS (17)
  1. TICE BCG [Suspect]
     Active Substance: BACILLUS CALMETTE-GUERIN SUBSTRAIN TICE LIVE ANTIGEN
     Indication: Bladder cancer
     Dosage: RECEIVED 1/6
     Route: 043
     Dates: start: 20190729
  2. TICE BCG [Suspect]
     Active Substance: BACILLUS CALMETTE-GUERIN SUBSTRAIN TICE LIVE ANTIGEN
     Dosage: RECEIVED 2/6
     Route: 043
     Dates: start: 20190805
  3. TICE BCG [Suspect]
     Active Substance: BACILLUS CALMETTE-GUERIN SUBSTRAIN TICE LIVE ANTIGEN
     Dosage: RECEIVED 3/6
     Route: 043
     Dates: start: 20190812
  4. TICE BCG [Suspect]
     Active Substance: BACILLUS CALMETTE-GUERIN SUBSTRAIN TICE LIVE ANTIGEN
     Dosage: RECEIVED # 4/6
     Route: 043
     Dates: start: 20190822
  5. TICE BCG [Suspect]
     Active Substance: BACILLUS CALMETTE-GUERIN SUBSTRAIN TICE LIVE ANTIGEN
     Dosage: RECEIVED # 5/6
     Route: 043
     Dates: start: 20190829
  6. TICE BCG [Suspect]
     Active Substance: BACILLUS CALMETTE-GUERIN SUBSTRAIN TICE LIVE ANTIGEN
     Dosage: RECEIVED # 6/6
     Route: 043
     Dates: start: 20190905
  7. TICE BCG [Suspect]
     Active Substance: BACILLUS CALMETTE-GUERIN SUBSTRAIN TICE LIVE ANTIGEN
     Dosage: RECEIVED #1/3
     Route: 043
     Dates: start: 20191216
  8. TICE BCG [Suspect]
     Active Substance: BACILLUS CALMETTE-GUERIN SUBSTRAIN TICE LIVE ANTIGEN
     Dosage: RECEIVED # 2/3
     Route: 043
     Dates: start: 20191223
  9. TICE BCG [Suspect]
     Active Substance: BACILLUS CALMETTE-GUERIN SUBSTRAIN TICE LIVE ANTIGEN
     Dosage: RECEIVED # 3/3
     Route: 043
     Dates: start: 20191230, end: 201912
  10. SINGULAIR [Concomitant]
     Active Substance: MONTELUKAST SODIUM
     Dosage: 1 DOSAGE FORM, QD
     Route: 048
  11. ISONIAZID [Concomitant]
     Active Substance: ISONIAZID
     Dosage: 1 DOSAGE FORM, QD
     Route: 048
     Dates: end: 20230118
  12. RIFAMPIN [Concomitant]
     Active Substance: RIFAMPIN
     Dosage: 1 DOSAGE FORM, QD
     Route: 048
     Dates: end: 20230118
  13. ETHAMBUTOL HYDROCHLORIDE [Concomitant]
     Active Substance: ETHAMBUTOL HYDROCHLORIDE
     Dosage: UNK
     Route: 048
     Dates: end: 20230118
  14. VITAMIN B6 [Concomitant]
     Active Substance: PYRIDOXINE HYDROCHLORIDE
     Dosage: 1 DOSAGE FORM
     Route: 048
     Dates: end: 20230118
  15. CYANOCOBALAMIN [Concomitant]
     Active Substance: CYANOCOBALAMIN
     Dosage: UNK
     Route: 048
  16. LIPITOR [Concomitant]
     Active Substance: ATORVASTATIN CALCIUM
     Dosage: 1 DOSAGE FORM, QD
     Route: 048
  17. CELEBREX [Concomitant]
     Active Substance: CELECOXIB
     Dosage: 1 CAPSULE WITH FOOD ORALLY ONCE A DAY
     Route: 048

REACTIONS (36)
  - Hip arthroplasty [Unknown]
  - Multiple organ dysfunction syndrome [Fatal]
  - Pneumonia bacterial [Fatal]
  - Acute respiratory distress syndrome [Fatal]
  - Atrial fibrillation [Fatal]
  - Respiratory failure [Fatal]
  - Mitral valve incompetence [Fatal]
  - Syncope [Unknown]
  - Bacteraemia [Unknown]
  - Deafness bilateral [Unknown]
  - Rheumatoid arthritis [Unknown]
  - Seizure [Unknown]
  - Erectile dysfunction [Unknown]
  - Bladder cancer recurrent [Unknown]
  - Tuberculosis [Fatal]
  - Sepsis [Fatal]
  - Mycobacterial infection [Unknown]
  - Cutaneous tuberculosis [Unknown]
  - Bovine tuberculosis [Unknown]
  - Wound [Unknown]
  - Wound secretion [Unknown]
  - Bladder catheterisation [Unknown]
  - Benign prostatic hyperplasia [Unknown]
  - Lower urinary tract symptoms [Unknown]
  - Hypertension [Unknown]
  - Body mass index increased [Unknown]
  - Cerumen impaction [Unknown]
  - Hyperlipidaemia [Unknown]
  - Sciatica [Unknown]
  - Vitamin B12 increased [Unknown]
  - Eosinophil count decreased [Unknown]
  - Cataract operation [Unknown]
  - Hypotension [Unknown]
  - Nausea [Unknown]
  - Osteolysis [Unknown]
  - Inappropriate schedule of product administration [Unknown]

NARRATIVE: CASE EVENT DATE: 20190822
